FAERS Safety Report 7673282-0 (Version None)
Quarter: 2011Q3

REPORT INFORMATION
  Report Type: 
  Country: None (occurrence: None)
  Receive Date: 20110810
  Receipt Date: 20110728
  Transmission Date: 20111222
  Serious: No
  Sender: FDA-Public Use
  Company Number: US-B.I. PHARMACEUTICALS,INC./RIDGEFIELD-2011-BP-18724BP

PATIENT
  Sex: Male

DRUGS (5)
  1. THEOPHYLLINE [Concomitant]
     Indication: PROSTATOMEGALY
     Dosage: 4 MG
     Route: 048
     Dates: start: 20100701
  2. BENICAR [Concomitant]
     Indication: HYPERTENSION
     Dosage: 20 MG
     Route: 048
     Dates: start: 20090101
  3. SYMBICORT [Concomitant]
     Indication: ASTHMA
     Route: 048
     Dates: start: 20040101
  4. SPIRIVA [Suspect]
     Indication: CHRONIC OBSTRUCTIVE PULMONARY DISEASE
     Dosage: 18 MCG
     Route: 055
     Dates: start: 20100701
  5. SIMVASTATIN [Concomitant]
     Indication: BLOOD CHOLESTEROL INCREASED
     Route: 048
     Dates: start: 20090101

REACTIONS (1)
  - NOCTURIA [None]
